FAERS Safety Report 16194913 (Version 2)
Quarter: 2019Q2

REPORT INFORMATION
  Report Type: Report from Study
  Country: None (occurrence: GB)
  Receive Date: 20190415
  Receipt Date: 20190521
  Transmission Date: 20190711
  Serious: Yes (Hospitalization, Other)
  Sender: FDA-Public Use
  Company Number: GB-ABBVIE-19K-167-2739844-00

PATIENT
  Age: 50 Year
  Sex: Male

DRUGS (11)
  1. HUMIRA [Suspect]
     Active Substance: ADALIMUMAB
     Indication: PSORIATIC ARTHROPATHY
     Route: 058
  2. AMITRIPTYLINE [Concomitant]
     Active Substance: AMITRIPTYLINE
     Indication: PRODUCT USED FOR UNKNOWN INDICATION
     Dosage: ONE TABLET AT NIGHT
     Route: 048
  3. FOLIC ACID. [Concomitant]
     Active Substance: FOLIC ACID
     Indication: PRODUCT USED FOR UNKNOWN INDICATION
     Dosage: IN THE MORNING
     Route: 048
  4. TRAMADOL. [Suspect]
     Active Substance: TRAMADOL
     Indication: PRODUCT USED FOR UNKNOWN INDICATION
     Route: 065
  5. PARACETAMOL [Concomitant]
     Active Substance: ACETAMINOPHEN
     Indication: PRODUCT USED FOR UNKNOWN INDICATION
     Route: 048
  6. DIAZEPAM. [Concomitant]
     Active Substance: DIAZEPAM
     Indication: PRODUCT USED FOR UNKNOWN INDICATION
  7. VITAMIN B CO STRONG [Concomitant]
     Indication: PRODUCT USED FOR UNKNOWN INDICATION
     Route: 048
  8. ALCOHOL. [Suspect]
     Active Substance: ALCOHOL
     Route: 048
     Dates: start: 2019
  9. ALCOHOL. [Suspect]
     Active Substance: ALCOHOL
     Indication: PRODUCT USED FOR UNKNOWN INDICATION
     Route: 048
  10. PREGABALIN. [Concomitant]
     Active Substance: PREGABALIN
     Indication: PRODUCT USED FOR UNKNOWN INDICATION
  11. THIAMINE. [Concomitant]
     Active Substance: THIAMINE
     Indication: PRODUCT USED FOR UNKNOWN INDICATION
     Route: 048

REACTIONS (22)
  - Alcohol poisoning [Recovering/Resolving]
  - Self-injurious ideation [Unknown]
  - Psoriatic arthropathy [Recovering/Resolving]
  - Cirrhosis alcoholic [Recovering/Resolving]
  - Memory impairment [Recovering/Resolving]
  - Asthenia [Recovering/Resolving]
  - Hallucination, auditory [Recovering/Resolving]
  - Borderline personality disorder [Recovering/Resolving]
  - Abnormal behaviour [Recovering/Resolving]
  - Suicidal ideation [Not Recovered/Not Resolved]
  - Coma scale abnormal [Recovering/Resolving]
  - Decreased appetite [Recovering/Resolving]
  - Arthritis [Recovering/Resolving]
  - Confusional state [Recovering/Resolving]
  - Hallucination, visual [Recovering/Resolving]
  - Hypoglycaemia [Recovering/Resolving]
  - Intentional self-injury [Unknown]
  - Depressed mood [Recovering/Resolving]
  - Poor quality sleep [Recovering/Resolving]
  - Loss of personal independence in daily activities [Recovering/Resolving]
  - Intentional overdose [Recovering/Resolving]
  - Negative thoughts [Unknown]

NARRATIVE: CASE EVENT DATE: 201812
